FAERS Safety Report 7621242-8 (Version None)
Quarter: 2011Q3

REPORT INFORMATION
  Report Type: 
  Country: None (occurrence: None)
  Receive Date: 20110719
  Receipt Date: 20110718
  Transmission Date: 20111222
  Serious: Yes (Other)
  Sender: FDA-Public Use
  Company Number: US-CEPHALON-2011003680

PATIENT
  Sex: Male
  Weight: 89 kg

DRUGS (17)
  1. DURICEF [Concomitant]
     Dates: start: 20110408, end: 20110415
  2. DEXAMETHASONE [Concomitant]
     Dates: start: 20110608
  3. TREANDA [Suspect]
     Indication: CHRONIC LYMPHOCYTIC LEUKAEMIA
     Route: 042
     Dates: start: 20110414, end: 20110609
  4. BACTRIM DS [Concomitant]
     Dates: start: 20110404, end: 20110701
  5. TYLENOL-500 [Concomitant]
  6. BENADRYL [Concomitant]
     Dates: start: 20110608
  7. DIFLUCAN [Concomitant]
  8. PRILOSEC [Concomitant]
     Dates: start: 20110518
  9. PREDNISONE [Concomitant]
     Dates: start: 20110405, end: 20110701
  10. LORATADINE [Concomitant]
  11. ALLOPURINOL [Concomitant]
     Dates: start: 20110415, end: 20110608
  12. ZOFRAN [Concomitant]
     Dates: start: 20110608
  13. RITUXIMAB [Concomitant]
     Indication: CHRONIC LYMPHOCYTIC LEUKAEMIA
     Route: 042
     Dates: start: 20110413, end: 20110608
  14. HYDROCORTISONE [Concomitant]
     Dates: start: 20110608
  15. FLONASE [Concomitant]
  16. ACYCLOVIR [Concomitant]
     Dates: start: 20110705
  17. IMMUNE GLOBULIN NOS [Concomitant]
     Dates: start: 20110706

REACTIONS (1)
  - HERPES ZOSTER [None]
